FAERS Safety Report 12209041 (Version 1)
Quarter: 2016Q1

REPORT INFORMATION
  Report Type: Spontaneous
  Country: GB (occurrence: GB)
  Receive Date: 20160324
  Receipt Date: 20160324
  Transmission Date: 20160526
  Serious: Yes (Disabling, Other)
  Sender: FDA-Public Use
  Company Number: CHNY2016GB000451

PATIENT
  Age: 19 Year
  Sex: Male
  Weight: 68 kg

DRUGS (1)
  1. SCOPODERM TTS [Suspect]
     Active Substance: SCOPOLAMINE
     Indication: MOTION SICKNESS
     Route: 062
     Dates: start: 20160210, end: 20160212

REACTIONS (2)
  - Confusional state [Recovering/Resolving]
  - Amnesia [Recovering/Resolving]

NARRATIVE: CASE EVENT DATE: 20160212
